FAERS Safety Report 7377054 (Version 4)
Quarter: 2013Q2

REPORT INFORMATION
  Report Type: Spontaneous
  Country: US (occurrence: US)
  Receive Date: 20100505
  Receipt Date: 20130409
  Transmission Date: 20140414
  Serious: Yes (Hospitalization, Other)
  Sender: FDA-Public Use
  Company Number: US-BAYER-201020600NA

PATIENT
  Age: 21 Year
  Sex: Female
  Weight: 115.19 kg

DRUGS (5)
  1. YASMIN [Suspect]
     Indication: POLYCYSTIC OVARIES
     Dosage: UNK UNK, QD
     Dates: start: 200604, end: 20060928
  2. AMOXICILLIN [Concomitant]
     Indication: INFECTION
     Dosage: 500 MG, TID
     Dates: start: 20060804
  3. AZITHROMYCIN [Concomitant]
     Indication: INFECTION
     Dosage: 500 MG, QD
     Dates: start: 20060908, end: 20060908
  4. AZITHROMYCIN [Concomitant]
     Indication: INFECTION
     Dosage: 250 MG, QD
     Dates: start: 20060909, end: 20060912
  5. LEXAPRO [Concomitant]
     Indication: DEPRESSION
     Dosage: 10 MG, QD
     Dates: start: 200604, end: 200709

REACTIONS (10)
  - Deep vein thrombosis [Recovered/Resolved]
  - Pulmonary embolism [Unknown]
  - Panic attack [None]
  - Anaemia [None]
  - Pain in extremity [Recovered/Resolved]
  - Local swelling [Recovered/Resolved]
  - Vomiting [Unknown]
  - Loss of consciousness [Unknown]
  - Dyspnoea [Unknown]
  - Off label use [None]
